FAERS Safety Report 21666294 (Version 1)
Quarter: 2022Q4

REPORT INFORMATION
  Report Type: Spontaneous
  Country: BE (occurrence: BE)
  Receive Date: 20221201
  Receipt Date: 20221201
  Transmission Date: 20230113
  Serious: Yes (Hospitalization, Other)
  Sender: FDA-Public Use
  Company Number: BE-CELLTRION INC.-2022BE016950

PATIENT

DRUGS (8)
  1. INFLIXIMAB [Suspect]
     Active Substance: INFLIXIMAB
     Indication: Pouchitis
     Dosage: 120MG SUBCUTANEOUS EVERY TWO WEEKS
     Route: 058
     Dates: start: 202105
  2. INFLIXIMAB [Suspect]
     Active Substance: INFLIXIMAB
     Dosage: 120MG SUBCUTANEOUS EVERY TWO WEEKS
     Route: 058
     Dates: start: 20221110
  3. INFLIXIMAB [Suspect]
     Active Substance: INFLIXIMAB
     Indication: Pouchitis
     Dosage: UNK
     Route: 042
     Dates: start: 201605, end: 202103
  4. INFLIXIMAB [Suspect]
     Active Substance: INFLIXIMAB
     Dosage: UNK
     Route: 042
     Dates: start: 20210318
  5. OMEPRAZOL SANDOZ [OMEPRAZOLE] [Concomitant]
     Dosage: 40 MG, QD
     Route: 048
  6. MAGISTRAL [TIABENDAZOLE] [Concomitant]
     Dosage: UNK UNK, TID
     Route: 048
  7. CODEINE PHOSPHATE [Concomitant]
     Active Substance: CODEINE PHOSPHATE
     Dosage: 30 MG
  8. IMODIUM [Concomitant]
     Active Substance: LOPERAMIDE HYDROCHLORIDE
     Dosage: 3 X PER DAG 2 STUK
     Route: 048

REACTIONS (2)
  - Neurosarcoidosis [Recovering/Resolving]
  - Off label use [Unknown]

NARRATIVE: CASE EVENT DATE: 20220927
